FAERS Safety Report 18037222 (Version 2)
Quarter: 2020Q3

REPORT INFORMATION
  Report Type: Spontaneous
  Country: CN (occurrence: CN)
  Receive Date: 20200717
  Receipt Date: 20200818
  Transmission Date: 20201103
  Serious: Yes (Other)
  Sender: FDA-Public Use
  Company Number: CN-AMNEAL PHARMACEUTICALS-2020-AMRX-02089

PATIENT
  Sex: Female

DRUGS (1)
  1. ALBENZA [Suspect]
     Active Substance: ALBENDAZOLE
     Indication: PRODUCT USED FOR UNKNOWN INDICATION
     Dosage: UNK
     Route: 065

REACTIONS (5)
  - Cerebral disorder [Unknown]
  - Drug ineffective [Unknown]
  - Abnormal faeces [Unknown]
  - Product complaint [Unknown]
  - Helminthic infection [Unknown]
